FAERS Safety Report 5145716-7 (Version None)
Quarter: 2006Q4

REPORT INFORMATION
  Report Type: 
  Country: None (occurrence: None)
  Receive Date: 20060915
  Receipt Date: 20051007
  Transmission Date: 20070319
  Serious: Yes (Hospitalization, Other)
  Sender: FDA-Public Use
  Company Number: S05-USA-04546-01

PATIENT
  Age: 67 Year
  Sex: Female

DRUGS (9)
  1. CELEXA [Suspect]
     Indication: DEPRESSION
     Dosage: 10 MG BID PO
     Route: 048
     Dates: start: 20020101, end: 20051001
  2. LEVOXYL [Concomitant]
  3. ESTRACE (ESTROGEN) [Concomitant]
  4. TARKA [Concomitant]
  5. ELAVIL [Concomitant]
  6. LIPITOR [Concomitant]
  7. LOPRESSOR [Concomitant]
  8. ALLEGRA [Concomitant]
  9. XANAX [Concomitant]

REACTIONS (7)
  - BLOOD GLUCOSE DECREASED [None]
  - BLOOD PRESSURE INCREASED [None]
  - DIZZINESS [None]
  - FEELING ABNORMAL [None]
  - HEADACHE [None]
  - HEART RATE DECREASED [None]
  - SWELLING FACE [None]
